FAERS Safety Report 5670135-4 (Version None)
Quarter: 2008Q1

REPORT INFORMATION
  Report Type: 
  Country: None (occurrence: None)
  Receive Date: 20080312
  Receipt Date: 20080310
  Transmission Date: 20080703
  Serious: Yes (Death, Life-Threatening, Hospitalization)
  Sender: FDA-Public Use
  Company Number: THQ2007A01167

PATIENT
  Age: 81 Year
  Sex: Male

DRUGS (12)
  1. LEUPROLIDE ACETATE DEPOT INJECTION  (LEUPROLIDE ACETATE) [Suspect]
     Indication: PROSTATE CANCER
     Dosage: 11.25 MG (11.25 MG, 1 IN 3 M) INJECTION
     Dates: start: 20061115
  2. CALCIUM CARBONATE/VIT D3 (OYSTER SHELL CALCIUM WITH VITAMIN D) [Concomitant]
  3. SERETIDE [Concomitant]
  4. DILTIAZEM HYDROCHLORIDE [Concomitant]
  5. AMIODARONE HCL [Concomitant]
  6. FENPROCOUMON [Concomitant]
  7. MOLSIDOMINE [Concomitant]
  8. PERINDOPRIL TERT-BUTYL-AMINE [Concomitant]
  9. FUROSEMIDE [Concomitant]
  10. FLUTICASONE PROPIONATE W/SALMETEROL [Concomitant]
  11. ZOLPIDEM TARTRATE [Concomitant]
  12. .. [Concomitant]

REACTIONS (5)
  - APHASIA [None]
  - CAROTID ARTERY STENOSIS [None]
  - CEREBROVASCULAR ACCIDENT [None]
  - NERVOUS SYSTEM DISORDER [None]
  - PNEUMONIA [None]
